FAERS Safety Report 21410428 (Version 1)
Quarter: 2022Q4

REPORT INFORMATION
  Report Type: Spontaneous
  Country: US (occurrence: None)
  Receive Date: 20221003
  Receipt Date: 20221003
  Transmission Date: 20230113
  Serious: No
  Sender: FDA-Public Use
  Company Number: None

PATIENT
  Sex: Female

DRUGS (1)
  1. LUPRON [Suspect]
     Active Substance: LEUPROLIDE ACETATE
     Dosage: OTHER QUANTITY : 11.25 MG;?OTHER FREQUENCY : Q 3 MONTHS;?
     Dates: start: 20220601

REACTIONS (3)
  - Product reconstitution quality issue [None]
  - Device defective [None]
  - Product leakage [None]
